FAERS Safety Report 11027375 (Version 2)
Quarter: 2015Q2

REPORT INFORMATION
  Report Type: Report from Study
  Country: FR (occurrence: FR)
  Receive Date: 20150414
  Receipt Date: 20150429
  Transmission Date: 20150821
  Serious: Yes (Hospitalization)
  Sender: FDA-Public Use
  Company Number: FR-009507513-1504FRA009712

PATIENT
  Age: 80 Year
  Sex: Female
  Weight: 73 kg

DRUGS (11)
  1. PEMBROLIZUMAB. [Suspect]
     Active Substance: PEMBROLIZUMAB
     Indication: MALIGNANT MELANOMA
     Dosage: 10 MG/KG, QOW
     Route: 042
     Dates: start: 20140115, end: 20150319
  2. PEMBROLIZUMAB. [Suspect]
     Active Substance: PEMBROLIZUMAB
     Dosage: 10 MG/KG, QOW
     Route: 042
     Dates: start: 20150416
  3. VOLTARENE (DICLOFENAC SODIUM) [Concomitant]
     Indication: CATARACT
     Dosage: 1 APPLICATION, QD
     Route: 047
     Dates: start: 20150312
  4. PEMBROLIZUMAB. [Suspect]
     Active Substance: PEMBROLIZUMAB
     Dosage: 10 MG/KG, QOW
     Route: 042
     Dates: start: 20150403, end: 20150403
  5. PROFENID [Concomitant]
     Active Substance: KETOPROFEN
     Indication: SCIATICA
     Dosage: 100 MG, QD
     Route: 048
     Dates: start: 20140521
  6. TOBRADEX [Concomitant]
     Active Substance: DEXAMETHASONE\TOBRAMYCIN
     Indication: CATARACT
     Dosage: 1 APPLICATION, QD
     Route: 047
     Dates: start: 20150312, end: 20150327
  7. PRIMPERAN [Concomitant]
     Active Substance: METOCLOPRAMIDE HYDROCHLORIDE
     Indication: VOMITING
     Dosage: UNK, PRN
     Route: 042
     Dates: start: 20140619
  8. GELTIM LP [Concomitant]
     Active Substance: TIMOLOL MALEATE
     Indication: CATARACT
     Dosage: 0.5 GTT, BID
     Route: 047
     Dates: start: 201306
  9. DIFFU-K [Concomitant]
     Active Substance: POTASSIUM CHLORIDE
     Indication: HYPOKALAEMIA
     Dosage: 600 MG, BID
     Route: 048
     Dates: start: 20141025
  10. DOLIPRANE [Concomitant]
     Active Substance: ACETAMINOPHEN
     Indication: SCIATICA
     Dosage: 333 MG, TID
     Route: 048
     Dates: start: 20140519
  11. HYDROCORTISONE. [Concomitant]
     Active Substance: HYDROCORTISONE
     Indication: HYPOPHYSITIS
     Dosage: 10 MG, TID
     Route: 048
     Dates: start: 20141023

REACTIONS (1)
  - Malaise [Recovered/Resolved]

NARRATIVE: CASE EVENT DATE: 20150403
